FAERS Safety Report 23730044 (Version 1)
Quarter: 2024Q2

REPORT INFORMATION
  Report Type: Report from Study
  Country: US (occurrence: None)
  Receive Date: 20240411
  Receipt Date: 20240411
  Transmission Date: 20240716
  Serious: Yes (Life-Threatening, Other)
  Sender: FDA-Public Use
  Company Number: 2022A381067

PATIENT
  Sex: Female
  Weight: 83.9 kg

DRUGS (1)
  1. LYNPARZA [Suspect]
     Active Substance: OLAPARIB
     Indication: Ovarian cancer
     Route: 048
     Dates: start: 20221005

REACTIONS (6)
  - Accidental overdose [Unknown]
  - Blood pressure increased [Recovered/Resolved]
  - Migraine [Unknown]
  - Musculoskeletal discomfort [Unknown]
  - Headache [Unknown]
  - Nausea [Unknown]
